FAERS Safety Report 8968628 (Version 1)
Quarter: 2012Q4

REPORT INFORMATION
  Report Type: 
  Country: FR (occurrence: FR)
  Receive Date: 20121218
  Receipt Date: 20121218
  Transmission Date: 20130627
  Serious: Yes (Life-Threatening)
  Sender: FDA-Public Use
  Company Number: FR-ASTRAZENECA-2012SE93710

PATIENT
  Age: 18993 Day
  Sex: Female

DRUGS (8)
  1. XEROQUEL [Suspect]
     Indication: BIPOLAR I DISORDER
     Route: 048
     Dates: start: 201210, end: 20121130
  2. XEROQUEL [Suspect]
     Indication: BIPOLAR I DISORDER
     Route: 048
     Dates: start: 20121201
  3. XEROQUEL [Suspect]
     Indication: BIPOLAR I DISORDER
     Route: 048
     Dates: start: 20121212
  4. TEMESTA [Suspect]
     Route: 048
     Dates: start: 20121212
  5. TEMESTA [Suspect]
     Route: 048
  6. IXEL [Suspect]
     Route: 048
     Dates: start: 20121212
  7. IXEL [Suspect]
     Route: 048
  8. ABILIFY [Concomitant]
     Indication: BIPOLAR I DISORDER

REACTIONS (3)
  - Intentional overdose [Recovered/Resolved]
  - Suicide attempt [Recovered/Resolved]
  - Somnolence [Recovered/Resolved]
